FAERS Safety Report 20184108 (Version 1)
Quarter: 2021Q4

REPORT INFORMATION
  Report Type: Spontaneous
  Country: US (occurrence: US)
  Receive Date: 20211214
  Receipt Date: 20211214
  Transmission Date: 20220303
  Serious: No
  Sender: FDA-Public Use
  Company Number: US-ABBVIE-21K-163-4082492-00

PATIENT
  Age: 83 Year
  Sex: Male
  Weight: 68.100 kg

DRUGS (5)
  1. IMBRUVICA [Suspect]
     Active Substance: IBRUTINIB
     Indication: Chronic lymphocytic leukaemia
     Route: 048
     Dates: start: 20210909, end: 20210915
  2. Amlodipine (NON-ABBVIE) [Concomitant]
     Indication: Hypertension
  3. Atenolol (NON-ABBVIE) [Concomitant]
     Indication: Hypertension
  4. Atorvastatin (NON-ABBVIE) [Concomitant]
     Indication: Blood cholesterol
  5. Pantoprazole (NON-ABBVIE) [Concomitant]
     Indication: Faeces discoloured

REACTIONS (3)
  - Diarrhoea [Not Recovered/Not Resolved]
  - Faeces discoloured [Not Recovered/Not Resolved]
  - Intentional product misuse [Unknown]

NARRATIVE: CASE EVENT DATE: 20210901
